FAERS Safety Report 4415204-1 (Version None)
Quarter: 2004Q3

REPORT INFORMATION
  Report Type: 
  Country: None (occurrence: None)
  Receive Date: 20040730
  Receipt Date: 20040722
  Transmission Date: 20050211
  Serious: Yes (Death, Hospitalization)
  Sender: FDA-Public Use
  Company Number: 2004-07-0110

PATIENT
  Age: 51 Year
  Sex: Female
  Weight: 56.6996 kg

DRUGS (8)
  1. PEG-INTRON [Suspect]
     Dosage: SEE IMAGE
     Route: 058
     Dates: start: 20030905, end: 20040114
  2. PEG-INTRON [Suspect]
     Dosage: SEE IMAGE
     Route: 058
     Dates: start: 20030905, end: 20040301
  3. PEG-INTRON [Suspect]
     Dosage: SEE IMAGE
     Route: 058
     Dates: start: 20040115, end: 20040301
  4. REBETOL [Suspect]
     Dosage: 800 MG QD ORAL
     Route: 048
     Dates: start: 20030905, end: 20040301
  5. ZXPREXA (OLANZAPINE) [Concomitant]
  6. FOSAMAX [Concomitant]
  7. IBUPROFEN [Concomitant]
  8. IRON [Concomitant]

REACTIONS (6)
  - APLASTIC ANAEMIA [None]
  - BONE MARROW DEPRESSION [None]
  - DEPRESSION [None]
  - MEDICATION ERROR [None]
  - PANCYTOPENIA [None]
  - TREATMENT NONCOMPLIANCE [None]
